FAERS Safety Report 9930071 (Version 1)
Quarter: 2014Q1

REPORT INFORMATION
  Report Type: Spontaneous
  Country: FR (occurrence: FR)
  Receive Date: 20140227
  Receipt Date: 20140227
  Transmission Date: 20141002
  Serious: Yes (Hospitalization)
  Sender: FDA-Public Use
  Company Number: FR-ABBVIE-14P-056-1204788-00

PATIENT
  Age: 50 Year
  Sex: Male

DRUGS (10)
  1. NORVIR [Suspect]
     Indication: HIV INFECTION
     Dosage: 2 DOSAGE FORMS DAILY
     Dates: start: 20040526, end: 20140110
  2. VIDEX [Suspect]
     Indication: HIV INFECTION
     Dates: start: 20111017, end: 20140110
  3. VIREAD [Suspect]
     Indication: HIV INFECTION
     Dates: start: 20111017, end: 20140110
  4. APTIVUS [Suspect]
     Indication: HIV INFECTION
     Dosage: 2 DOAGE FORMS
     Dates: start: 20111017, end: 20140110
  5. DOLUTEGRAVIR [Suspect]
     Indication: HIV INFECTION
     Dates: start: 20111017, end: 20140110
  6. BACTRIM [Concomitant]
     Indication: PROPHYLAXIS
     Dates: start: 20060117
  7. ZYPREXA [Concomitant]
     Indication: ANXIETY
     Dates: start: 20110516
  8. CRESTOR [Concomitant]
     Indication: HYPERLIPIDAEMIA
     Dates: start: 20100429
  9. CRESTOR [Concomitant]
     Dates: start: 20130705
  10. PARIET [Concomitant]
     Indication: PRODUCT USED FOR UNKNOWN INDICATION

REACTIONS (2)
  - Nodular regenerative hyperplasia [Unknown]
  - Hepatocellular injury [Recovered/Resolved]
